FAERS Safety Report 6250623-2 (Version None)
Quarter: 2009Q2

REPORT INFORMATION
  Report Type: 
  Country: None (occurrence: None)
  Receive Date: 20090630
  Receipt Date: 20090616
  Transmission Date: 20091009
  Serious: Yes (Other)
  Sender: FDA-Public Use
  Company Number: AU-AMGEN-QUU348631

PATIENT
  Sex: Female
  Weight: 92.05 kg

DRUGS (5)
  1. NEULASTA [Suspect]
     Indication: CHEMOTHERAPY
     Route: 058
     Dates: start: 20090506
  2. FLUOROURACIL [Concomitant]
     Dates: start: 20090505
  3. EPIRUBICIN [Concomitant]
     Dates: start: 20090505
  4. CYCLOPHOSPHAMIDE [Concomitant]
     Dates: start: 20090505
  5. DOCETAXEL [Concomitant]

REACTIONS (1)
  - FEBRILE NEUTROPENIA [None]
